FAERS Safety Report 13460243 (Version 1)
Quarter: 2017Q2

REPORT INFORMATION
  Report Type: Spontaneous
  Country: US (occurrence: US)
  Receive Date: 20170420
  Receipt Date: 20170420
  Transmission Date: 20170830
  Serious: No
  Sender: FDA-Public Use
  Company Number: US-009507513-1704USA005022

PATIENT
  Age: 31 Year
  Sex: Female

DRUGS (1)
  1. ASMANEX [Suspect]
     Active Substance: MOMETASONE FUROATE
     Dosage: 2 PUFFS AM/ PM
     Route: 055

REACTIONS (3)
  - Drug dose omission [Unknown]
  - No adverse event [Unknown]
  - Product quality issue [Unknown]
